FAERS Safety Report 4677518-X (Version None)
Quarter: 2005Q2

REPORT INFORMATION
  Report Type: 
  Country: None (occurrence: None)
  Receive Date: 20050525
  Receipt Date: 20050525
  Transmission Date: 20051028
  Serious: Yes (Hospitalization)
  Sender: FDA-Public Use
  Company Number: None

PATIENT
  Age: 80 Year
  Sex: Male
  Weight: 94.2 kg

DRUGS (10)
  1. PENICILLIN [Suspect]
  2. CITALOPRAM [Concomitant]
  3. WARFARIN [Concomitant]
  4. COMBIVENT [Concomitant]
  5. SENNA [Concomitant]
  6. ACETAMINOPHEN [Concomitant]
  7. TERAZOSIN [Concomitant]
  8. RANITIDINE [Concomitant]
  9. MULTI-VITAMIN [Concomitant]
  10. GABAPENTIN [Concomitant]

REACTIONS (1)
  - NEPHRITIS INTERSTITIAL [None]
